FAERS Safety Report 10404460 (Version 2)
Quarter: 2014Q4

REPORT INFORMATION
  Report Type: Spontaneous
  Country: US (occurrence: US)
  Receive Date: 20140823
  Receipt Date: 20141021
  Transmission Date: 20150528
  Serious: Yes (Hospitalization)
  Sender: FDA-Public Use
  Company Number: US-009507513-1408USA009440

PATIENT
  Sex: Female
  Weight: 61 kg

DRUGS (2)
  1. NUVARING [Suspect]
     Active Substance: ETHINYL ESTRADIOL\ETONOGESTREL
     Indication: METRORRHAGIA
  2. NUVARING [Suspect]
     Active Substance: ETHINYL ESTRADIOL\ETONOGESTREL
     Indication: METRORRHAGIA
     Dosage: UNK
     Route: 067
     Dates: start: 200910

REACTIONS (5)
  - Jugular vein thrombosis [Recovering/Resolving]
  - Fibromyalgia [Unknown]
  - Metrorrhagia [Recovered/Resolved]
  - Pain in extremity [Unknown]
  - Deep vein thrombosis [Recovering/Resolving]

NARRATIVE: CASE EVENT DATE: 201001
